FAERS Safety Report 6962105-0 (Version None)
Quarter: 2010Q3

REPORT INFORMATION
  Report Type: 
  Country: None (occurrence: None)
  Receive Date: 20100823
  Receipt Date: 20100618
  Transmission Date: 20110219
  Serious: No
  Sender: FDA-Public Use
  Company Number: 003516

PATIENT
  Sex: Female

DRUGS (1)
  1. CIMZIA [Suspect]
     Indication: CROHN'S DISEASE
     Dosage: (400 MG 1X/MONTH, 400 MG MG SUBCUTANEOUS)
     Route: 058
     Dates: start: 20091101, end: 20100101

REACTIONS (2)
  - COUGH [None]
  - DRUG INEFFECTIVE [None]
